FAERS Safety Report 7245621-6 (Version None)
Quarter: 2011Q1

REPORT INFORMATION
  Report Type: 
  Country: None (occurrence: None)
  Receive Date: 20110126
  Receipt Date: 20110120
  Transmission Date: 20110831
  Serious: Yes (Life-Threatening, Hospitalization)
  Sender: FDA-Public Use
  Company Number: PHHY2011CH04782

PATIENT
  Age: 64 Year
  Sex: Male

DRUGS (31)
  1. NOVALGIN [Suspect]
     Indication: PAIN
     Dosage: 500 MG, BID
     Route: 048
     Dates: start: 20101215, end: 20101218
  2. MOTILIUM [Concomitant]
     Indication: NAUSEA
     Dosage: UNK
     Route: 048
  3. ELOXATIN [Suspect]
     Indication: COLON CANCER
     Dosage: 200 MG, PER 3 WEEK
     Route: 041
     Dates: start: 20100128, end: 20101215
  4. XELODA [Suspect]
     Dosage: 1000 MG, BID
     Route: 048
     Dates: start: 20100128, end: 20101218
  5. LIPANTHYL [Concomitant]
     Indication: LIPID METABOLISM DISORDER
     Dosage: 200 MG, UNK
     Route: 048
  6. ZOLPIDEM [Concomitant]
     Dosage: 20 MEQ/KG, UNK
  7. XELODA [Suspect]
     Dosage: UNK
     Dates: end: 20090401
  8. ZOLEDRONATE [Concomitant]
     Indication: METASTASIS
     Dosage: UNK
     Route: 041
     Dates: end: 20101122
  9. LYRICA [Concomitant]
     Indication: PAIN
     Dosage: UNK
     Route: 048
  10. IRINOTECAN [Concomitant]
     Dosage: UNK
     Dates: end: 20090401
  11. GLUCOPHAGE [Suspect]
     Indication: TYPE 1 DIABETES MELLITUS
     Dosage: UNK
     Route: 048
     Dates: end: 20101201
  12. ALOXI [Concomitant]
     Indication: PROPHYLACTIC CHEMOTHERAPY
     Dosage: 0.25 MG, UNK
     Dates: start: 20100128, end: 20101215
  13. NEXIUM [Concomitant]
     Route: 048
  14. DORMICUM [Concomitant]
     Indication: INSOMNIA
     Dosage: UNK
  15. EMEND [Concomitant]
     Dosage: 125 MG, UNK
     Route: 048
     Dates: start: 20100128, end: 20101215
  16. PRIMPERAN TAB [Concomitant]
     Indication: NAUSEA
     Dosage: UNK
     Route: 048
  17. PRIMPERAN TAB [Concomitant]
     Indication: VOMITING
  18. AVASTIN [Suspect]
     Indication: COLON CANCER
     Dosage: UNK
     Dates: start: 20081201, end: 20090301
  19. TAVEGYL                                 /AUS/ [Concomitant]
     Indication: PROPHYLACTIC CHEMOTHERAPY
     Dosage: 1 MG, UNK
     Route: 040
     Dates: start: 20100128, end: 20101215
  20. XELODA [Suspect]
     Indication: COLON CANCER
     Dosage: UNK
     Dates: start: 20081201, end: 20090301
  21. PERFALGAN [Concomitant]
     Indication: PROPHYLACTIC CHEMOTHERAPY
     Dosage: 1000 MG, UNK
     Route: 041
  22. FRAXIPARINE [Concomitant]
     Indication: PROPHYLACTIC CHEMOTHERAPY
     Route: 058
  23. MOTILIUM [Concomitant]
     Indication: VOMITING
  24. ECOFENAC [Suspect]
     Dosage: 50 MG, BID
     Dates: start: 20101215, end: 20101218
  25. XELODA [Suspect]
     Dosage: UNK
     Dates: end: 20090901
  26. AVASTIN [Suspect]
     Dosage: 700 MG, PER 3 WEEKS
     Route: 041
     Dates: start: 20100128, end: 20101215
  27. IRINOTECAN [Concomitant]
     Dosage: UNK
     Dates: start: 20081201, end: 20090301
  28. MEPHAMESON [Concomitant]
     Indication: PROPHYLACTIC CHEMOTHERAPY
     Dosage: 8 MG, UNK
     Route: 041
     Dates: start: 20100128, end: 20101215
  29. ZANTAC [Concomitant]
     Indication: PROPHYLACTIC CHEMOTHERAPY
     Dosage: 50 MG, UNK
  30. GLIMEPIRIDE [Concomitant]
     Indication: TYPE 1 DIABETES MELLITUS
     Route: 048
  31. INSULATARD [Concomitant]
     Indication: TYPE 1 DIABETES MELLITUS
     Route: 058

REACTIONS (23)
  - APATHY [None]
  - TACHYPNOEA [None]
  - HAEMOLYTIC ANAEMIA [None]
  - LEUKOCYTOSIS [None]
  - MUSCLE ATROPHY [None]
  - PERIPHERAL COLDNESS [None]
  - EOSINOPHILIA [None]
  - HEPATOSPLENOMEGALY [None]
  - DECREASED APPETITE [None]
  - ANAEMIA MACROCYTIC [None]
  - THROMBOCYTOPENIA [None]
  - HYPOTENSION [None]
  - AZOTAEMIA [None]
  - GENERAL PHYSICAL HEALTH DETERIORATION [None]
  - RENAL TUBULAR NECROSIS [None]
  - METABOLIC ACIDOSIS [None]
  - WEIGHT DECREASED [None]
  - CACHEXIA [None]
  - ASTHENIA [None]
  - HYPERSOMNIA [None]
  - JAUNDICE [None]
  - HYPERCHROMIC ANAEMIA [None]
  - RENAL FAILURE ACUTE [None]
